FAERS Safety Report 8330754-3 (Version None)
Quarter: 2012Q2

REPORT INFORMATION
  Report Type: 
  Country: None (occurrence: None)
  Receive Date: 20120502
  Receipt Date: 20120410
  Transmission Date: 20120825
  Serious: No
  Sender: FDA-Public Use
  Company Number: US-AMGEN-USASP2012022533

PATIENT
  Age: 52 Year
  Sex: Female

DRUGS (8)
  1. ADVIL PM                           /05810501/ [Concomitant]
     Dosage: UNK
  2. CELEXA [Concomitant]
     Dosage: UNK
  3. DYAZIDE [Concomitant]
     Dosage: UNK
  4. FISH OIL [Concomitant]
     Dosage: UNK
  5. PREDNISONE [Concomitant]
     Dosage: UNK
  6. ENBREL [Suspect]
     Indication: RHEUMATOID ARTHRITIS
     Dosage: 50 MG, QWK
     Dates: start: 20111101
  7. MULTI-VITAMINS [Concomitant]
     Dosage: UNK
  8. PROPRANOLOL [Concomitant]
     Dosage: UNK

REACTIONS (1)
  - THERAPEUTIC RESPONSE DECREASED [None]
